FAERS Safety Report 21456186 (Version 1)
Quarter: 2022Q4

REPORT INFORMATION
  Report Type: Report from Study
  Country: JP (occurrence: IN)
  Receive Date: 20221014
  Receipt Date: 20221014
  Transmission Date: 20230113
  Serious: Yes (Other)
  Sender: FDA-Public Use
  Company Number: JP-SUN PHARMACEUTICAL INDUSTRIES LTD-2022R1-358889

PATIENT
  Sex: Female

DRUGS (2)
  1. ACOTIAMIDE [Suspect]
     Active Substance: ACOTIAMIDE
     Indication: Dyspepsia
     Dosage: 100 MILLIGRAM, TID
     Route: 065
  2. ESOMEPRAZOLE [Suspect]
     Active Substance: ESOMEPRAZOLE
     Indication: Dyspepsia
     Dosage: 20 MILLIGRAM, DAILY
     Route: 065

REACTIONS (2)
  - Intermenstrual bleeding [Unknown]
  - Breast pain [Unknown]
